FAERS Safety Report 21935436 (Version 2)
Quarter: 2023Q1

REPORT INFORMATION
  Report Type: Spontaneous
  Country: US (occurrence: US)
  Receive Date: 20230201
  Receipt Date: 20230302
  Transmission Date: 20230418
  Serious: Yes (Hospitalization)
  Sender: FDA-Public Use
  Company Number: US-SA-SAC20230130000379

PATIENT
  Sex: Female

DRUGS (3)
  1. DUPIXENT [Suspect]
     Active Substance: DUPILUMAB
     Indication: Asthma
     Dosage: 300MG, QOW
     Route: 058
     Dates: start: 20220823
  2. DROXIDOPA [Concomitant]
     Active Substance: DROXIDOPA
     Dosage: UNK
  3. TRELEGY ELLIPTA [Concomitant]
     Active Substance: FLUTICASONE FUROATE\UMECLIDINIUM BROMIDE\VILANTEROL TRIFENATATE
     Dosage: UNK

REACTIONS (5)
  - Asthma [Recovering/Resolving]
  - Impaired quality of life [Unknown]
  - COVID-19 [Unknown]
  - Oropharyngeal pain [Unknown]
  - Product dose omission in error [Unknown]
